FAERS Safety Report 5685404-1 (Version None)
Quarter: 2008Q1

REPORT INFORMATION
  Report Type: 
  Country: None (occurrence: None)
  Receive Date: 20080328
  Receipt Date: 20080318
  Transmission Date: 20080703
  Serious: Yes (Hospitalization)
  Sender: FDA-Public Use
  Company Number: AU-PFIZER INC-2008025823

PATIENT
  Sex: Male

DRUGS (2)
  1. CHAMPIX [Suspect]
  2. METHADON HCL TAB [Concomitant]

REACTIONS (1)
  - FEELING ABNORMAL [None]
